FAERS Safety Report 24620404 (Version 3)
Quarter: 2025Q1

REPORT INFORMATION
  Report Type: Spontaneous
  Country: JP (occurrence: JP)
  Receive Date: 20241114
  Receipt Date: 20250108
  Transmission Date: 20250409
  Serious: Yes (Life-Threatening, Other)
  Sender: ALEXION PHARMACEUTICALS
  Company Number: JP-ASTRAZENECA-240086321_064320_P_1

PATIENT
  Age: 53 Year
  Weight: 63 kg

DRUGS (78)
  1. ONDEXXYA [Suspect]
     Active Substance: ANDEXANET ALFA
     Indication: Subdural haematoma
  2. ONDEXXYA [Suspect]
     Active Substance: ANDEXANET ALFA
     Route: 042
  3. ONDEXXYA [Suspect]
     Active Substance: ANDEXANET ALFA
  4. ONDEXXYA [Suspect]
     Active Substance: ANDEXANET ALFA
     Route: 042
  5. SEVOFLURANE [Concomitant]
     Active Substance: SEVOFLURANE
  6. SEVOFLURANE [Concomitant]
     Active Substance: SEVOFLURANE
     Route: 055
  7. SEVOFLURANE [Concomitant]
     Active Substance: SEVOFLURANE
     Dosage: 45 MILLILITER, QD
  8. SEVOFLURANE [Concomitant]
     Active Substance: SEVOFLURANE
     Dosage: 45 MILLILITER, QD
     Route: 055
  9. PROPOFOL [Concomitant]
     Active Substance: PROPOFOL
     Indication: Subarachnoid haemorrhage
     Dosage: DOSE UNKNOWN
     Route: 041
  10. PROPOFOL [Concomitant]
     Active Substance: PROPOFOL
     Dosage: DOSE UNKNOWN
  11. FENTANYL [Concomitant]
     Active Substance: FENTANYL
     Indication: Subarachnoid haemorrhage
     Route: 041
  12. FENTANYL [Concomitant]
     Active Substance: FENTANYL
  13. ROCURONIUM BROMIDE [Concomitant]
     Active Substance: ROCURONIUM BROMIDE
     Indication: Subarachnoid haemorrhage
     Route: 041
  14. ROCURONIUM BROMIDE [Concomitant]
     Active Substance: ROCURONIUM BROMIDE
  15. REMIFENTANIL [Concomitant]
     Active Substance: REMIFENTANIL
     Indication: Subarachnoid haemorrhage
     Route: 041
  16. REMIFENTANIL [Concomitant]
     Active Substance: REMIFENTANIL
  17. CEFAZOLIN SODIUM [Concomitant]
     Active Substance: CEFAZOLIN SODIUM
     Indication: Subarachnoid haemorrhage
     Dosage: 1 GRAM, TID
  18. CEFAZOLIN SODIUM [Concomitant]
     Active Substance: CEFAZOLIN SODIUM
     Dosage: 1 GRAM, TID
     Route: 041
  19. CEFAZOLIN SODIUM [Concomitant]
     Active Substance: CEFAZOLIN SODIUM
     Dosage: 1 GRAM, QD
  20. CEFAZOLIN SODIUM [Concomitant]
     Active Substance: CEFAZOLIN SODIUM
     Dosage: 1 GRAM, QD
     Route: 041
  21. FYCOMPA [Concomitant]
     Active Substance: PERAMPANEL
     Indication: Subarachnoid haemorrhage
     Route: 048
  22. FYCOMPA [Concomitant]
     Active Substance: PERAMPANEL
  23. VIMPAT [Concomitant]
     Active Substance: LACOSAMIDE
     Indication: Subarachnoid haemorrhage
     Route: 048
  24. VIMPAT [Concomitant]
     Active Substance: LACOSAMIDE
  25. FOSPHENYTOIN SODIUM [Concomitant]
     Active Substance: FOSPHENYTOIN SODIUM
     Indication: Subarachnoid haemorrhage
  26. FOSPHENYTOIN SODIUM [Concomitant]
     Active Substance: FOSPHENYTOIN SODIUM
     Route: 041
  27. FOSPHENYTOIN SODIUM [Concomitant]
     Active Substance: FOSPHENYTOIN SODIUM
     Dosage: 325 MILLIGRAM, QD
  28. FOSPHENYTOIN SODIUM [Concomitant]
     Active Substance: FOSPHENYTOIN SODIUM
     Dosage: 325 MILLIGRAM, QD
     Route: 041
  29. NICARDIPINE HYDROCHLORIDE [Concomitant]
     Active Substance: NICARDIPINE HYDROCHLORIDE
     Indication: Subarachnoid haemorrhage
     Route: 041
  30. NICARDIPINE HYDROCHLORIDE [Concomitant]
     Active Substance: NICARDIPINE HYDROCHLORIDE
  31. GASTER [Concomitant]
     Active Substance: FAMOTIDINE
     Indication: Subarachnoid haemorrhage
     Route: 041
  32. GASTER [Concomitant]
     Active Substance: FAMOTIDINE
  33. HEPARIN CALCIUM [Concomitant]
     Active Substance: HEPARIN CALCIUM
     Indication: Subarachnoid haemorrhage
     Route: 065
  34. HEPARIN CALCIUM [Concomitant]
     Active Substance: HEPARIN CALCIUM
     Route: 065
  35. HEPARIN CALCIUM [Concomitant]
     Active Substance: HEPARIN CALCIUM
     Dosage: 3000 INTERNATIONAL UNIT, QD
  36. HEPARIN CALCIUM [Concomitant]
     Active Substance: HEPARIN CALCIUM
     Dosage: 3000 INTERNATIONAL UNIT, QD
     Route: 041
  37. SYMPROIC [Concomitant]
     Active Substance: NALDEMEDINE TOSYLATE
     Route: 048
  38. SYMPROIC [Concomitant]
     Active Substance: NALDEMEDINE TOSYLATE
  39. SYMPROIC [Concomitant]
     Active Substance: NALDEMEDINE TOSYLATE
  40. SYMPROIC [Concomitant]
     Active Substance: NALDEMEDINE TOSYLATE
     Route: 048
  41. SYMPROIC [Concomitant]
     Active Substance: NALDEMEDINE TOSYLATE
     Route: 048
  42. SYMPROIC [Concomitant]
     Active Substance: NALDEMEDINE TOSYLATE
  43. AMLODIPINE [Concomitant]
     Active Substance: AMLODIPINE BESYLATE
     Route: 048
  44. AMLODIPINE [Concomitant]
     Active Substance: AMLODIPINE BESYLATE
  45. AMLODIPINE [Concomitant]
     Active Substance: AMLODIPINE BESYLATE
  46. AMLODIPINE [Concomitant]
     Active Substance: AMLODIPINE BESYLATE
     Route: 048
  47. AMLODIPINE [Concomitant]
     Active Substance: AMLODIPINE BESYLATE
     Route: 048
  48. AMLODIPINE [Concomitant]
     Active Substance: AMLODIPINE BESYLATE
  49. LOXOPROFEN [Concomitant]
     Active Substance: LOXOPROFEN
     Route: 048
  50. LOXOPROFEN [Concomitant]
     Active Substance: LOXOPROFEN
  51. LOXOPROFEN [Concomitant]
     Active Substance: LOXOPROFEN
  52. LOXOPROFEN [Concomitant]
     Active Substance: LOXOPROFEN
     Route: 048
  53. LOXOPROFEN [Concomitant]
     Active Substance: LOXOPROFEN
     Route: 048
  54. LOXOPROFEN [Concomitant]
     Active Substance: LOXOPROFEN
  55. VONOPRAZAN FUMARATE [Concomitant]
     Active Substance: VONOPRAZAN FUMARATE
     Route: 048
  56. VONOPRAZAN FUMARATE [Concomitant]
     Active Substance: VONOPRAZAN FUMARATE
  57. VONOPRAZAN FUMARATE [Concomitant]
     Active Substance: VONOPRAZAN FUMARATE
  58. VONOPRAZAN FUMARATE [Concomitant]
     Active Substance: VONOPRAZAN FUMARATE
     Route: 048
  59. VONOPRAZAN FUMARATE [Concomitant]
     Active Substance: VONOPRAZAN FUMARATE
     Route: 048
  60. VONOPRAZAN FUMARATE [Concomitant]
     Active Substance: VONOPRAZAN FUMARATE
  61. EDOXABAN TOSYLATE [Concomitant]
     Active Substance: EDOXABAN TOSYLATE
     Indication: Embolism arterial
     Route: 048
  62. EDOXABAN TOSYLATE [Concomitant]
     Active Substance: EDOXABAN TOSYLATE
  63. EDOXABAN TOSYLATE [Concomitant]
     Active Substance: EDOXABAN TOSYLATE
  64. EDOXABAN TOSYLATE [Concomitant]
     Active Substance: EDOXABAN TOSYLATE
     Route: 048
  65. EDOXABAN TOSYLATE [Concomitant]
     Active Substance: EDOXABAN TOSYLATE
     Route: 048
  66. EDOXABAN TOSYLATE [Concomitant]
     Active Substance: EDOXABAN TOSYLATE
  67. MAGNESIUM OXIDE [Concomitant]
     Active Substance: MAGNESIUM OXIDE
     Route: 048
  68. MAGNESIUM OXIDE [Concomitant]
     Active Substance: MAGNESIUM OXIDE
  69. MAGNESIUM OXIDE [Concomitant]
     Active Substance: MAGNESIUM OXIDE
  70. MAGNESIUM OXIDE [Concomitant]
     Active Substance: MAGNESIUM OXIDE
     Route: 048
  71. MAGNESIUM OXIDE [Concomitant]
     Active Substance: MAGNESIUM OXIDE
     Route: 048
  72. MAGNESIUM OXIDE [Concomitant]
     Active Substance: MAGNESIUM OXIDE
  73. OLMESARTAN [Concomitant]
     Active Substance: OLMESARTAN
     Route: 048
  74. OLMESARTAN [Concomitant]
     Active Substance: OLMESARTAN
  75. OLMESARTAN [Concomitant]
     Active Substance: OLMESARTAN
  76. OLMESARTAN [Concomitant]
     Active Substance: OLMESARTAN
     Route: 048
  77. OLMESARTAN [Concomitant]
     Active Substance: OLMESARTAN
     Route: 048
  78. OLMESARTAN [Concomitant]
     Active Substance: OLMESARTAN

REACTIONS (6)
  - Metastases to liver [Unknown]
  - Metastases to peritoneum [Unknown]
  - Coagulopathy [Not Recovered/Not Resolved]
  - Subileus [Not Recovered/Not Resolved]
  - Anaemia [Unknown]
  - Blood albumin decreased [Unknown]
